FAERS Safety Report 10514476 (Version 2)
Quarter: 2014Q4

REPORT INFORMATION
  Report Type: Report from Study
  Country: US (occurrence: US)
  Receive Date: 20141013
  Receipt Date: 20141013
  Transmission Date: 20150528
  Serious: No
  Sender: FDA-Public Use
  Company Number: US-009507513-1408USA016082

PATIENT
  Age: 48 Year
  Sex: Male

DRUGS (1)
  1. PEMBROLIZUMAB. [Suspect]
     Active Substance: PEMBROLIZUMAB
     Indication: RETINAL MELANOMA
     Dosage: 2 MG/KG, Q3W
     Route: 042
     Dates: start: 20140728, end: 20140929

REACTIONS (4)
  - Pyrexia [Recovered/Resolved]
  - Nausea [Not Recovered/Not Resolved]
  - Nausea [Not Recovered/Not Resolved]
  - Fatigue [Not Recovered/Not Resolved]

NARRATIVE: CASE EVENT DATE: 20140818
